FAERS Safety Report 4297341-8 (Version None)
Quarter: 2004Q1

REPORT INFORMATION
  Report Type: 
  Country: None (occurrence: None)
  Receive Date: 20040218
  Receipt Date: 20040210
  Transmission Date: 20041129
  Serious: Yes (Death)
  Sender: FDA-Public Use
  Company Number: PHBS2004GB02020

PATIENT
  Age: 41 Year
  Sex: Male

DRUGS (3)
  1. CYCLOSPORINE [Suspect]
     Indication: LIVER TRANSPLANT
     Route: 065
  2. AZATHIOPRINE [Suspect]
     Indication: LIVER TRANSPLANT
  3. PREDNISONE [Suspect]
     Indication: LIVER TRANSPLANT

REACTIONS (1)
  - ACUTE LEUKAEMIA [None]
